FAERS Safety Report 4424353-3 (Version None)
Quarter: 2004Q3

REPORT INFORMATION
  Report Type: 
  Country: None (occurrence: None)
  Receive Date: 20040812
  Receipt Date: 20040803
  Transmission Date: 20050211
  Serious: Yes (Other)
  Sender: FDA-Public Use
  Company Number: US-MERCK-0408USA00233

PATIENT
  Age: 60 Year
  Sex: Male

DRUGS (7)
  1. NORVASC [Concomitant]
     Route: 065
  2. LIPITOR [Concomitant]
     Route: 065
  3. AMARYL [Concomitant]
     Route: 065
     Dates: end: 20020101
  4. LANTUS [Suspect]
     Indication: DIABETES MELLITUS NON-INSULIN-DEPENDENT
     Route: 065
     Dates: start: 20021001
  5. COZAAR [Suspect]
     Route: 048
  6. SEROQUEL [Concomitant]
     Route: 065
  7. PRANDIN [Concomitant]
     Route: 065

REACTIONS (2)
  - JAUNDICE [None]
  - THROMBOCYTOPENIA [None]
